FAERS Safety Report 13441123 (Version 1)
Quarter: 2017Q2

REPORT INFORMATION
  Report Type: Spontaneous
  Country: SI (occurrence: SI)
  Receive Date: 20170413
  Receipt Date: 20170413
  Transmission Date: 20170830
  Serious: Yes (Other)
  Sender: FDA-Public Use
  Company Number: PHHY2017SI038085

PATIENT
  Sex: Female

DRUGS (4)
  1. ELDERIN [Suspect]
     Active Substance: ETODOLAC
     Indication: BACK PAIN
     Dosage: 2X1, TAKING IT IRREGULARLY 2 WEEKS
     Route: 065
     Dates: start: 20161121
  2. OSPEN [Concomitant]
     Active Substance: PENICILLIN V
     Indication: ANGINA PECTORIS
     Route: 065
     Dates: start: 20161224
  3. TOMALON [Concomitant]
     Indication: HYPERTENSION
     Route: 065
  4. LEKOPTIN [Concomitant]
     Active Substance: VERAPAMIL HYDROCHLORIDE
     Indication: HYPERTENSION
     Route: 065

REACTIONS (1)
  - Immune thrombocytopenic purpura [Not Recovered/Not Resolved]
